FAERS Safety Report 6924914-3 (Version None)
Quarter: 2010Q3

REPORT INFORMATION
  Report Type: 
  Country: None (occurrence: None)
  Receive Date: 20100816
  Receipt Date: 20100814
  Transmission Date: 20110219
  Serious: No
  Sender: FDA-Public Use
  Company Number: US-PFIZER INC-2010081849

PATIENT
  Sex: Male

DRUGS (2)
  1. GENOTROPIN [Suspect]
     Dosage: UNK
  2. OMNITROPE [Suspect]
     Dosage: UNK
     Dates: start: 20100504, end: 20100510

REACTIONS (1)
  - RASH PRURITIC [None]
